FAERS Safety Report 7024123-6 (Version None)
Quarter: 2010Q4

REPORT INFORMATION
  Report Type: 
  Country: None (occurrence: None)
  Receive Date: 20101001
  Receipt Date: 20100921
  Transmission Date: 20110411
  Serious: Yes (Disabling)
  Sender: FDA-Public Use
  Company Number: JP-ROCHE-700049

PATIENT
  Sex: Female

DRUGS (16)
  1. TOCILIZUMAB [Suspect]
     Indication: RHEUMATOID ARTHRITIS
     Route: 041
     Dates: start: 20090623, end: 20090623
  2. TOCILIZUMAB [Suspect]
     Route: 041
     Dates: start: 20090722, end: 20090722
  3. TOCILIZUMAB [Suspect]
     Route: 041
     Dates: start: 20090818, end: 20090818
  4. TOCILIZUMAB [Suspect]
     Route: 041
     Dates: start: 20090916, end: 20090916
  5. TOCILIZUMAB [Suspect]
     Route: 041
     Dates: start: 20091014, end: 20091014
  6. TOCILIZUMAB [Suspect]
     Route: 041
     Dates: start: 20091118, end: 20091118
  7. TOCILIZUMAB [Suspect]
     Route: 041
     Dates: start: 20091216
  8. AZULFIDINE [Concomitant]
     Dosage: FORM: ENTERIC COATING DRUG.
     Route: 048
     Dates: end: 20090826
  9. PREDNISOLONE [Concomitant]
     Dosage: FORM: PERORAL AGENT.
     Route: 048
     Dates: end: 20090818
  10. MOBIC [Concomitant]
     Route: 048
  11. PARIET [Concomitant]
     Route: 048
  12. TERNELIN [Concomitant]
     Dosage: FORM: PERORAL AGENT.
     Route: 048
  13. JUVELA N [Concomitant]
     Dosage: FORM: PERORAL AGENT.
     Route: 048
  14. METHYCOBAL [Concomitant]
     Dosage: FORM: PERORAL AGENT.
     Route: 048
  15. POLLAKISU [Concomitant]
     Route: 048
  16. LENDORMIN [Concomitant]
     Route: 048

REACTIONS (1)
  - TENDON RUPTURE [None]
